FAERS Safety Report 22119912 (Version 1)
Quarter: 2023Q1

REPORT INFORMATION
  Report Type: Spontaneous
  Country: US (occurrence: US)
  Receive Date: 20230321
  Receipt Date: 20230321
  Transmission Date: 20230418
  Serious: No
  Sender: FDA-Public Use
  Company Number: US-SANOFI-01535737

PATIENT
  Age: 62 Year
  Sex: Female

DRUGS (1)
  1. LANTUS SOLOSTAR [Suspect]
     Active Substance: INSULIN GLARGINE
     Indication: Type 2 diabetes mellitus
     Dosage: 30 IU, QD AND DRUG TREATMENT DURATION:100 UNITS LEFT

REACTIONS (4)
  - Feeling abnormal [Unknown]
  - Myopathy [Unknown]
  - Nerve injury [Unknown]
  - Intervertebral disc disorder [Unknown]
